FAERS Safety Report 9547624 (Version 1)
Quarter: 2013Q2

REPORT INFORMATION
  Report Type: Spontaneous
  Country: US (occurrence: None)
  Receive Date: 20130606
  Receipt Date: 20130606
  Transmission Date: 20140414
  Serious: Yes (Hospitalization)
  Sender: FDA-Public Use
  Company Number: 163-POMAL-13034838

PATIENT
  Age: 61 Year
  Sex: Female

DRUGS (8)
  1. POMALYST [Suspect]
     Indication: PLASMA CELL MYELOMA
     Dosage: 4 MG,  21 IN 21 D,  PO
     Route: 048
     Dates: start: 20130226
  2. DEXAMETHASONE (DEXAMETHASONE) [Concomitant]
  3. OMEPRAZOLE (OMEPRAZOLE) [Concomitant]
  4. COMPAZINE (PROCHLORPERAZINE EDISYLATE) [Concomitant]
  5. LISINOPRIL (LISINOPRIL) [Concomitant]
  6. ZOCOR [Concomitant]
  7. GLIPIZIDE (GLIPIZIDE) [Concomitant]
  8. HCTZ (HYDROCHLOROTHIAZIDE) [Concomitant]

REACTIONS (2)
  - Bone pain [None]
  - Pneumonia [None]
